FAERS Safety Report 8481518-1 (Version None)
Quarter: 2012Q2

REPORT INFORMATION
  Report Type: 
  Country: None (occurrence: None)
  Receive Date: 20120625
  Receipt Date: 20120619
  Transmission Date: 20120825
  Serious: Yes (Other)
  Sender: FDA-Public Use
  Company Number: 2012036413

PATIENT
  Age: 90 Year
  Weight: 50 kg

DRUGS (2)
  1. WARFARIN SODIUM [Concomitant]
  2. FRAGMIN [Suspect]
     Indication: THROMBOSIS PROPHYLAXIS
     Dosage: 5000 IU, 1X/DAY
     Dates: start: 20120101

REACTIONS (1)
  - CEREBRAL INFARCTION [None]
